FAERS Safety Report 5039601-9 (Version None)
Quarter: 2006Q2

REPORT INFORMATION
  Report Type: 
  Country: None (occurrence: None)
  Receive Date: 20060629
  Receipt Date: 20060206
  Transmission Date: 20061013
  Serious: Yes (Hospitalization)
  Sender: FDA-Public Use
  Company Number: JP-ABBOTT-06P-087-0324433-00

PATIENT
  Age: 63 Year
  Sex: Male

DRUGS (9)
  1. CLARITHROMYCIN [Suspect]
     Indication: HELICOBACTER INFECTION
     Route: 048
     Dates: start: 20040206, end: 20040213
  2. OMEPRAZOLE [Concomitant]
     Indication: HELICOBACTER INFECTION
     Route: 048
     Dates: start: 20040206, end: 20040213
  3. AMOXICILLIN [Concomitant]
     Indication: HELICOBACTER INFECTION
     Route: 048
     Dates: start: 20040206, end: 20040213
  4. FAMOTIDINE [Concomitant]
     Indication: PROPHYLAXIS AGAINST GASTROINTESTINAL ULCER
     Route: 048
  5. TEPRENONE [Concomitant]
     Indication: PROPHYLAXIS AGAINST GASTROINTESTINAL ULCER
     Route: 048
  6. ETIZOLAM [Concomitant]
     Indication: NECK INJURY
     Route: 048
  7. KETOPROFEN [Concomitant]
     Indication: NECK INJURY
     Route: 062
  8. DICLOFENAC SODIUM [Concomitant]
     Indication: NECK INJURY
  9. TIZANIDINE HYDROCHLORIDE [Concomitant]
     Indication: NECK INJURY
     Route: 048

REACTIONS (3)
  - FALL [None]
  - FEMUR FRACTURE [None]
  - OPEN WOUND [None]
